FAERS Safety Report 6307628-2 (Version None)
Quarter: 2009Q3

REPORT INFORMATION
  Report Type: 
  Country: None (occurrence: None)
  Receive Date: 20090812
  Receipt Date: 20090812
  Transmission Date: 20100115
  Serious: Yes (Hospitalization)
  Sender: FDA-Public Use
  Company Number: None

PATIENT
  Age: 52 Year
  Sex: Male
  Weight: 152.9 kg

DRUGS (2)
  1. AMLODIPINE [Suspect]
     Indication: HYPERTENSION
     Dosage: 10 MG EVERYDAY PO
     Route: 048
     Dates: start: 20080117, end: 20090808
  2. LISINOPRIL [Suspect]
     Indication: HYPERTENSION
     Dosage: 20 MG EVERYDAY PO
     Route: 048
     Dates: start: 20031006, end: 20090808

REACTIONS (2)
  - DIZZINESS [None]
  - SYNCOPE [None]
